FAERS Safety Report 20017679 (Version 2)
Quarter: 2021Q4

REPORT INFORMATION
  Report Type: Spontaneous
  Country: CA (occurrence: CA)
  Receive Date: 20211031
  Receipt Date: 20211101
  Transmission Date: 20220303
  Serious: Yes (Death)
  Sender: FDA-Public Use
  Company Number: CA-009507513-2110CAN008994

PATIENT
  Age: 75 Year
  Sex: Female

DRUGS (1)
  1. CUBICIN [Suspect]
     Active Substance: DAPTOMYCIN
     Dosage: 1400 MILLIGRAM, 1 EVERY 48 HOURS

REACTIONS (3)
  - Blood creatine phosphokinase increased [Fatal]
  - Cardiac arrest [Fatal]
  - Rhabdomyolysis [Fatal]
